FAERS Safety Report 9555291 (Version 1)
Quarter: 2013Q3

REPORT INFORMATION
  Report Type: Spontaneous
  Country: US (occurrence: None)
  Receive Date: 20130816
  Receipt Date: 20130816
  Transmission Date: 20140515
  Serious: No
  Sender: FDA-Public Use
  Company Number: US-011482

PATIENT
  Age: 57 Year
  Sex: Female
  Weight: 58.97 kg

DRUGS (1)
  1. PICO-SALAX [Suspect]
     Indication: BOWEL PREPARATION
     Dosage: DAY BEFORE METHOD (10 AM AND 15:00 PM)?
     Dates: start: 20130417, end: 20130417

REACTIONS (4)
  - Drug ineffective [None]
  - Gastrooesophageal reflux disease [None]
  - Abdominal pain [None]
  - Diarrhoea [None]
